FAERS Safety Report 5868360-2 (Version None)
Quarter: 2008Q3

REPORT INFORMATION
  Report Type: 
  Country: None (occurrence: None)
  Receive Date: 20080903
  Receipt Date: 20080318
  Transmission Date: 20090109
  Serious: Yes (Hospitalization, Other)
  Sender: FDA-Public Use
  Company Number: US-BAYER-200818961GPV

PATIENT
  Age: 50 Year
  Sex: Female

DRUGS (4)
  1. ALEMTUZUMAB [Suspect]
     Indication: RENAL TRANSPLANT
     Route: 042
  2. TACROLIMUS [Concomitant]
     Indication: RENAL TRANSPLANT
     Route: 065
  3. MYCOPHENOLATE MOFETIL [Concomitant]
     Indication: RENAL TRANSPLANT
  4. SOLU-MEDROL [Concomitant]
     Indication: RENAL TRANSPLANT
     Route: 042

REACTIONS (7)
  - BLOOD CULTURE POSITIVE [None]
  - CANDIDIASIS [None]
  - GRAFT INFECTION [None]
  - KIDNEY INFECTION [None]
  - RENAL FAILURE ACUTE [None]
  - RESPIRATORY FAILURE [None]
  - URINARY TRACT INFECTION FUNGAL [None]
